FAERS Safety Report 7319722-8 (Version None)
Quarter: 2011Q1

REPORT INFORMATION
  Report Type: 
  Country: None (occurrence: None)
  Receive Date: 20110228
  Receipt Date: 20100815
  Transmission Date: 20110831
  Serious: No
  Sender: FDA-Public Use
  Company Number: A0877315A

PATIENT
  Age: 53 Year
  Sex: Male

DRUGS (2)
  1. LAMICTAL [Suspect]
     Dosage: 200MG PER DAY
  2. ABILIFY [Concomitant]

REACTIONS (4)
  - HYPERSENSITIVITY [None]
  - PRURITUS [None]
  - SCRATCH [None]
  - LACERATION [None]
